FAERS Safety Report 7906228-8 (Version None)
Quarter: 2011Q4

REPORT INFORMATION
  Report Type: 
  Country: None (occurrence: None)
  Receive Date: 20111110
  Receipt Date: 20111031
  Transmission Date: 20120403
  Serious: Yes (Hospitalization)
  Sender: FDA-Public Use
  Company Number: US-BAYER-2011-021224

PATIENT
  Age: 21 Year
  Sex: Female
  Weight: 83.9 kg

DRUGS (8)
  1. YAZ [Suspect]
     Indication: CONTRACEPTION
     Dosage: UNK
     Route: 048
     Dates: start: 20081007, end: 20090829
  2. YAZ [Suspect]
     Indication: PREMENSTRUAL SYNDROME
  3. SPRINTEC [Concomitant]
     Dosage: UNK
     Dates: start: 20100101
  4. FLUTICASONE PROPIONATE [Concomitant]
     Indication: ASTHMA
     Dosage: UNK UNK, BID
  5. TOPAMAX [Concomitant]
     Indication: MIGRAINE
     Dosage: 50 MG, QD
     Route: 048
  6. KARIVA [Concomitant]
     Dosage: UNK
     Dates: start: 20090101, end: 20100101
  7. ALBUTEROL INHALER [Concomitant]
     Indication: ASTHMA
     Dosage: UNK UNK, PRN
  8. LEXAPRO [Concomitant]
     Indication: ANTIDEPRESSANT THERAPY
     Dosage: 10 MG, QD
     Route: 048

REACTIONS (5)
  - ABDOMINAL PAIN UPPER [None]
  - CHOLELITHIASIS [None]
  - CHOLECYSTITIS [None]
  - PAIN [None]
  - EMOTIONAL DISTRESS [None]
